FAERS Safety Report 9746085 (Version 1)
Quarter: 2013Q4

REPORT INFORMATION
  Report Type: Spontaneous
  Country: ES (occurrence: ES)
  Receive Date: 20131211
  Receipt Date: 20131211
  Transmission Date: 20140711
  Serious: No
  Sender: FDA-Public Use
  Company Number: ES-GILEAD-2009-0024438

PATIENT
  Sex: Male

DRUGS (3)
  1. ATRIPLA [Suspect]
     Indication: HIV INFECTION
  2. EFAVIRENZ [Suspect]
  3. TRUVADA [Concomitant]
     Indication: HIV INFECTION

REACTIONS (1)
  - Nervous system disorder [Recovered/Resolved]
